FAERS Safety Report 7142104-9 (Version None)
Quarter: 2010Q4

REPORT INFORMATION
  Report Type: 
  Country: None (occurrence: None)
  Receive Date: 20101207
  Receipt Date: 20101110
  Transmission Date: 20110411
  Serious: No
  Sender: FDA-Public Use
  Company Number: US-PFIZER INC-2010149453

PATIENT
  Age: 59 Year
  Sex: Female
  Weight: 77.098 kg

DRUGS (1)
  1. ADVIL CONGESTION RELIEF [Suspect]
     Indication: SINUS HEADACHE
     Dosage: 1 DF, SINGLE
     Route: 048
     Dates: start: 20101109, end: 20101109

REACTIONS (4)
  - DIZZINESS [None]
  - DRY MOUTH [None]
  - SOMNOLENCE [None]
  - VOMITING [None]
